FAERS Safety Report 12246302 (Version 3)
Quarter: 2016Q2

REPORT INFORMATION
  Report Type: Spontaneous
  Country: US (occurrence: US)
  Receive Date: 20160407
  Receipt Date: 20160503
  Transmission Date: 20160815
  Serious: Yes (Hospitalization, Other)
  Sender: FDA-Public Use
  Company Number: US-JNJFOC-20160329202

PATIENT
  Age: 67 Year
  Sex: Female
  Weight: 84.82 kg

DRUGS (5)
  1. XARELTO [Suspect]
     Active Substance: RIVAROXABAN
     Indication: THROMBOSIS
     Route: 048
     Dates: start: 20151001
  2. DILANTIN [Concomitant]
     Active Substance: PHENYTOIN
     Indication: SEIZURE
     Route: 048
  3. COUMADIN [Suspect]
     Active Substance: WARFARIN SODIUM
     Indication: PRODUCT USED FOR UNKNOWN INDICATION
     Route: 065
     Dates: start: 201407, end: 201408
  4. XARELTO [Suspect]
     Active Substance: RIVAROXABAN
     Indication: THROMBOSIS
     Dosage: 1 PILL A DAY
     Route: 048
     Dates: start: 20130126
  5. GABAPENTIN. [Concomitant]
     Active Substance: GABAPENTIN
     Indication: DIABETIC FOOT
     Route: 048
     Dates: start: 2015

REACTIONS (11)
  - Weight increased [Unknown]
  - Femur fracture [Unknown]
  - Blood urine present [Unknown]
  - Pain in extremity [Not Recovered/Not Resolved]
  - Fall [Recovering/Resolving]
  - Ankle fracture [Unknown]
  - Haematochezia [Unknown]
  - Loss of consciousness [Recovering/Resolving]
  - Urinary incontinence [Not Recovered/Not Resolved]
  - Fall [Unknown]
  - Haemorrhage [Recovering/Resolving]

NARRATIVE: CASE EVENT DATE: 201312
